FAERS Safety Report 7897597-6 (Version None)
Quarter: 2011Q4

REPORT INFORMATION
  Report Type: 
  Country: None (occurrence: None)
  Receive Date: 20111107
  Receipt Date: 20110915
  Transmission Date: 20120403
  Serious: Yes (Other)
  Sender: FDA-Public Use
  Company Number: US-CELGENEUS-163-21880-11053306

PATIENT
  Sex: Female

DRUGS (3)
  1. ALLOPURINOL [Concomitant]
     Route: 065
     Dates: end: 20080801
  2. REVLIMID [Suspect]
     Dosage: 25 MILLIGRAM
     Route: 048
     Dates: start: 20080513, end: 20080901
  3. DECADRON [Concomitant]
     Route: 065
     Dates: start: 20080501, end: 20081001

REACTIONS (1)
  - NECROLYTIC MIGRATORY ERYTHEMA [None]
